FAERS Safety Report 12718563 (Version 1)
Quarter: 2016Q3

REPORT INFORMATION
  Report Type: Spontaneous
  Country: GB (occurrence: GB)
  Receive Date: 20160906
  Receipt Date: 20160906
  Transmission Date: 20161109
  Serious: Yes (Other)
  Sender: FDA-Public Use
  Company Number: GB-ASTRAZENECA-2016SE92416

PATIENT
  Age: 57 Year
  Sex: Female
  Weight: 105.3 kg

DRUGS (9)
  1. NOVOMIX [Concomitant]
     Active Substance: INSULIN ASPART
  2. ZOMORPH [Concomitant]
     Active Substance: MORPHINE SULFATE
  3. BYETTA [Suspect]
     Active Substance: EXENATIDE
     Indication: TYPE 2 DIABETES MELLITUS
     Route: 058
     Dates: start: 20160812, end: 20160815
  4. LISINOPRIL. [Concomitant]
     Active Substance: LISINOPRIL
  5. LANSOPRAZOLE. [Concomitant]
     Active Substance: LANSOPRAZOLE
  6. AMLODIPINE [Concomitant]
     Active Substance: AMLODIPINE BESYLATE
  7. TRAMADOL. [Concomitant]
     Active Substance: TRAMADOL
  8. CYCLIZINE [Concomitant]
     Active Substance: CYCLIZINE
  9. LEVOTHYROXINE SODIUM. [Concomitant]
     Active Substance: LEVOTHYROXINE SODIUM

REACTIONS (4)
  - Anaphylactic reaction [Unknown]
  - Abdominal pain [Recovered/Resolved]
  - Vomiting [Recovered/Resolved]
  - Throat irritation [Recovered/Resolved]

NARRATIVE: CASE EVENT DATE: 20160813
